FAERS Safety Report 8740537 (Version 6)
Quarter: 2013Q2

REPORT INFORMATION
  Report Type: Spontaneous
  Country: US (occurrence: US)
  Receive Date: 20120823
  Receipt Date: 20130402
  Transmission Date: 20140414
  Serious: No
  Sender: FDA-Public Use
  Company Number: US-009507513-1208USA007109

PATIENT
  Age: 58 Year
  Sex: Male

DRUGS (11)
  1. VICTRELIS [Suspect]
     Indication: HEPATITIS C
     Dosage: 800 MG, TID
     Route: 048
     Dates: start: 201207
  2. VICTRELIS [Suspect]
     Dosage: 4 OF 200MG, TID
     Route: 048
     Dates: start: 201209
  3. VICTRELIS [Suspect]
     Dosage: 4 OF 200MG, TID
     Route: 048
  4. VICTRELIS [Suspect]
     Dosage: 800 MG, TID
     Route: 048
     Dates: start: 201208
  5. PEGASYS [Suspect]
     Indication: HEPATITIS C
     Dosage: UNK
     Dates: start: 201207
  6. RIBASPHERE [Suspect]
     Indication: HEPATITIS C
     Dosage: UNK
     Dates: start: 201207
  7. FLUOCINONIDE [Concomitant]
  8. TRIAMCINOLONE [Concomitant]
  9. CANASA [Concomitant]
  10. PROCRIT [Concomitant]
     Indication: HAEMOGLOBIN DECREASED
     Dosage: UNK UNK, QW
     Route: 058
     Dates: start: 201210
  11. LIALDA [Concomitant]

REACTIONS (20)
  - Abdominal pain upper [Not Recovered/Not Resolved]
  - Abdominal pain [Not Recovered/Not Resolved]
  - Gingival bleeding [Not Recovered/Not Resolved]
  - Haemoptysis [Not Recovered/Not Resolved]
  - Oral lichen planus [Not Recovered/Not Resolved]
  - Leukoplakia oral [Not Recovered/Not Resolved]
  - Abdominal pain [Unknown]
  - Muscle spasms [Not Recovered/Not Resolved]
  - Pain [Not Recovered/Not Resolved]
  - Dyspnoea [Unknown]
  - Fatigue [Not Recovered/Not Resolved]
  - Fatigue [Unknown]
  - Dizziness [Unknown]
  - Haemoglobin decreased [Unknown]
  - Vomiting [Not Recovered/Not Resolved]
  - Diarrhoea [Not Recovered/Not Resolved]
  - Dysgeusia [Not Recovered/Not Resolved]
  - Nausea [Not Recovered/Not Resolved]
  - Dizziness [Not Recovered/Not Resolved]
  - Product quality issue [Unknown]
